FAERS Safety Report 8174359-6 (Version None)
Quarter: 2012Q1

REPORT INFORMATION
  Report Type: 
  Country: None (occurrence: None)
  Receive Date: 20120229
  Receipt Date: 20120221
  Transmission Date: 20120608
  Serious: Yes (Hospitalization, Other)
  Sender: FDA-Public Use
  Company Number: US-BAYER-2011-056562

PATIENT
  Age: 22 Year
  Sex: Female
  Weight: 81.633 kg

DRUGS (7)
  1. PHENTERMINE [Concomitant]
     Dosage: 30 MG, UNK
  2. CLARITIN [Concomitant]
     Dosage: 10 MG, PRN
  3. ZYRTEC-D 12 HOUR [Concomitant]
  4. DARVOCET [Concomitant]
  5. MULTI-VITAMIN [Concomitant]
  6. YASMIN [Suspect]
     Indication: ORAL CONTRACEPTION
     Dosage: UNK
     Dates: start: 20040401, end: 20080201
  7. PRILOSEC [Concomitant]

REACTIONS (3)
  - CHOLECYSTITIS CHRONIC [None]
  - CHOLECYSTECTOMY [None]
  - GALLBLADDER NON-FUNCTIONING [None]
